FAERS Safety Report 8231544-2 (Version None)
Quarter: 2012Q1

REPORT INFORMATION
  Report Type: 
  Country: None (occurrence: None)
  Receive Date: 20120323
  Receipt Date: 20120321
  Transmission Date: 20120608
  Serious: Yes (Life-Threatening, Hospitalization, Other)
  Sender: FDA-Public Use
  Company Number: PHEH2012US005150

PATIENT
  Sex: Female

DRUGS (5)
  1. RITALIN [Concomitant]
     Dosage: 20 MG, BID
     Route: 048
  2. CLONAZEPAM [Concomitant]
     Dosage: 65 MG, BID
     Route: 048
  3. SEROQUEL XR [Concomitant]
     Dosage: 300 MG, QD
     Route: 048
  4. LEVORA 0.15/30-21 [Concomitant]
     Dosage: 75 MG, QD
     Route: 048
  5. GILENYA [Suspect]
     Indication: MULTIPLE SCLEROSIS
     Dosage: 0.5 MG, QD
     Route: 048
     Dates: start: 20120214

REACTIONS (5)
  - BLOOD PRESSURE INCREASED [None]
  - CHEST DISCOMFORT [None]
  - CHEST PAIN [None]
  - HYPERHIDROSIS [None]
  - HYPERTENSIVE EMERGENCY [None]
